FAERS Safety Report 23822446 (Version 2)
Quarter: 2024Q2

REPORT INFORMATION
  Report Type: Spontaneous
  Country: US (occurrence: US)
  Receive Date: 20240506
  Receipt Date: 20240513
  Transmission Date: 20240716
  Serious: Yes (Hospitalization, Other)
  Sender: FDA-Public Use
  Company Number: US-PURDUE-USA-2024-0309368

PATIENT
  Age: 1 Day
  Sex: Female

DRUGS (1)
  1. DEXTROAMPHET SACCHARAT, AMPHET ASPARTATE, DEXTROAMPHET SULFATE AND AMP [Suspect]
     Active Substance: AMPHETAMINE ASPARTATE\AMPHETAMINE ASPARTATE MONOHYDRATE\AMPHETAMINE SULFATE\DEXTROAMPHETAMINE SACCHA
     Indication: Product used for unknown indication
     Dosage: UNK
     Route: 064

REACTIONS (5)
  - Respiratory failure [Unknown]
  - PHACES syndrome [Unknown]
  - Foetal exposure during pregnancy [Unknown]
  - Small for dates baby [Unknown]
  - Drug screen positive [Unknown]
